FAERS Safety Report 14065622 (Version 1)
Quarter: 2017Q4

REPORT INFORMATION
  Report Type: Spontaneous
  Country: US (occurrence: US)
  Receive Date: 20171009
  Receipt Date: 20171009
  Transmission Date: 20180321
  Serious: No
  Sender: FDA-Public Use
  Company Number: US-BAYER-2017-193491

PATIENT
  Age: 69 Year
  Sex: Female

DRUGS (5)
  1. ADVIL [Concomitant]
     Active Substance: IBUPROFEN
     Indication: PAIN
     Dates: start: 20170925, end: 20171006
  2. PERCOCET [Concomitant]
     Active Substance: ACETAMINOPHEN\OXYCODONE HYDROCHLORIDE
     Indication: PAIN
     Dates: start: 20170925, end: 20171005
  3. MILK OF MAGNESIA [Concomitant]
     Active Substance: MAGNESIUM HYDROXIDE
     Indication: CONSTIPATION
     Dates: start: 20171003, end: 20171006
  4. MIRALAX [Suspect]
     Active Substance: POLYETHYLENE GLYCOL 3350
     Indication: POST PROCEDURAL CONSTIPATION
     Dosage: 0.5 OZ PACKET IN 12 OZ WATER
     Dates: start: 20171006, end: 20171006
  5. TYLENOL [Concomitant]
     Active Substance: ACETAMINOPHEN
     Indication: PAIN
     Dates: start: 20170925, end: 20171006

REACTIONS (3)
  - Pruritus [Not Recovered/Not Resolved]
  - Erythema [Not Recovered/Not Resolved]
  - Swelling [Not Recovered/Not Resolved]

NARRATIVE: CASE EVENT DATE: 20171006
